FAERS Safety Report 20131649 (Version 1)
Quarter: 2021Q4

REPORT INFORMATION
  Report Type: Spontaneous
  Country: US (occurrence: None)
  Receive Date: 20211130
  Receipt Date: 20211130
  Transmission Date: 20220303
  Serious: Yes (Hospitalization)
  Sender: FDA-Public Use
  Company Number: None

PATIENT
  Age: 50 Year
  Sex: Male
  Weight: 69.4 kg

DRUGS (2)
  1. NULOJIX [Suspect]
     Active Substance: BELATACEPT
     Indication: Renal transplant
     Route: 042
     Dates: start: 20211008
  2. NULOJIX [Suspect]
     Active Substance: BELATACEPT
     Dates: start: 20211008

REACTIONS (4)
  - Cough [None]
  - Diarrhoea [None]
  - Respiratory tract congestion [None]
  - Metapneumovirus infection [None]

NARRATIVE: CASE EVENT DATE: 20211129
